FAERS Safety Report 4521692-2 (Version None)
Quarter: 2004Q4

REPORT INFORMATION
  Report Type: 
  Country: None (occurrence: None)
  Receive Date: 20041209
  Receipt Date: 20041125
  Transmission Date: 20050328
  Serious: Yes (Death, Hospitalization)
  Sender: FDA-Public Use
  Company Number: 200413514EU

PATIENT
  Sex: Male

DRUGS (1)
  1. TAXOTERE [Suspect]
     Indication: PROSTATE CANCER
     Route: 042

REACTIONS (1)
  - COLITIS ISCHAEMIC [None]
